FAERS Safety Report 7106285-5 (Version None)
Quarter: 2010Q4

REPORT INFORMATION
  Report Type: 
  Country: None (occurrence: None)
  Receive Date: 20101116
  Receipt Date: 20101005
  Transmission Date: 20110411
  Serious: Yes (Other)
  Sender: FDA-Public Use
  Company Number: PHHY2010US66603

PATIENT
  Sex: Female

DRUGS (13)
  1. RECLAST [Suspect]
     Dosage: UNK
  2. METHOTREXATE [Concomitant]
     Dosage: UNK
  3. PREDNISONE [Concomitant]
     Dosage: UNK
  4. FOLIC ACID [Concomitant]
     Dosage: UNK
  5. WELLBUTRIN [Concomitant]
  6. ZOLOFT [Concomitant]
     Dosage: UNK
  7. XANAX [Concomitant]
  8. ASPIRIN [Concomitant]
     Dosage: UNK
  9. ROZEREM [Concomitant]
     Dosage: UNK
  10. PRILOSEC [Concomitant]
     Dosage: UNK
  11. ZANTAC [Concomitant]
  12. OXYCODONE HCL [Concomitant]
  13. METOPROLOL [Concomitant]
     Dosage: UNK

REACTIONS (7)
  - ARTHRALGIA [None]
  - GAIT DISTURBANCE [None]
  - MUSCULOSKELETAL DISCOMFORT [None]
  - MYALGIA [None]
  - OSTEOARTHRITIS [None]
  - PAIN [None]
  - RHEUMATOID ARTHRITIS [None]
